FAERS Safety Report 25010422 (Version 1)
Quarter: 2025Q1

REPORT INFORMATION
  Report Type: Spontaneous
  Country: US (occurrence: US)
  Receive Date: 20250225
  Receipt Date: 20250225
  Transmission Date: 20250408
  Serious: No
  Sender: AMGEN
  Company Number: US-AMGEN-USASP2025034729

PATIENT

DRUGS (2)
  1. PREDNISONE [Suspect]
     Active Substance: PREDNISONE
     Indication: Giant cell arteritis
     Dosage: (DOSE BETWEEN 20MG AND 60 MG), QD
     Route: 065
  2. TOCILIZUMAB [Concomitant]
     Active Substance: TOCILIZUMAB
     Indication: Giant cell arteritis
     Route: 058

REACTIONS (5)
  - Giant cell arteritis [Unknown]
  - Drug effective for unapproved indication [Unknown]
  - Treatment failure [Unknown]
  - Therapy non-responder [Unknown]
  - Off label use [Unknown]
